FAERS Safety Report 7855598-8 (Version None)
Quarter: 2011Q4

REPORT INFORMATION
  Report Type: 
  Country: None (occurrence: None)
  Receive Date: 20111026
  Receipt Date: 20111011
  Transmission Date: 20120403
  Serious: Yes (Death)
  Sender: FDA-Public Use
  Company Number: AU-WATSON-2011-17464

PATIENT
  Age: 52 Year
  Sex: Male

DRUGS (2)
  1. VERAPAMIL HCL [Suspect]
     Indication: PRODUCT USED FOR UNKNOWN INDICATION
     Dosage: UNKNOWN
     Route: 065
  2. ATENOLOL [Suspect]
     Indication: PRODUCT USED FOR UNKNOWN INDICATION
     Dosage: UNKNOWN
     Route: 065

REACTIONS (5)
  - HYPOTENSION [None]
  - OVERDOSE [None]
  - SHOCK [None]
  - BRADYCARDIA [None]
  - LOSS OF CONSCIOUSNESS [None]
